FAERS Safety Report 22585422 (Version 1)
Quarter: 2023Q2

REPORT INFORMATION
  Report Type: Spontaneous
  Country: GB (occurrence: GB)
  Receive Date: 20230610
  Receipt Date: 20230610
  Transmission Date: 20230722
  Serious: Yes (Other)
  Sender: FDA-Public Use
  Company Number: GB-CELLTRION INC.-2023GB011677

PATIENT

DRUGS (1)
  1. INFLIXIMAB [Suspect]
     Active Substance: INFLIXIMAB
     Indication: Ankylosing spondylitis
     Dosage: 120MG PRE FILLED PEN PK2
     Route: 058
     Dates: start: 202208

REACTIONS (10)
  - Shock symptom [Unknown]
  - Vertebral lesion [Unknown]
  - Disease recurrence [Unknown]
  - Feeling hot [Unknown]
  - Varicose vein [Unknown]
  - Pruritus [Unknown]
  - Peripheral swelling [Unknown]
  - Pain [Unknown]
  - Intentional dose omission [Unknown]
  - Drug ineffective [Unknown]
